FAERS Safety Report 10953285 (Version 1)
Quarter: 2015Q1

REPORT INFORMATION
  Report Type: Spontaneous
  Country: US (occurrence: US)
  Receive Date: 20150325
  Receipt Date: 20150325
  Transmission Date: 20150721
  Serious: No
  Sender: FDA-Public Use
  Company Number: US-PFIZER INC-2015100269

PATIENT
  Age: 67 Year
  Sex: Female
  Weight: 61 kg

DRUGS (5)
  1. LYRICA [Suspect]
     Active Substance: PREGABALIN
     Indication: FIBROMYALGIA
     Dosage: THE LOWEST DOSE OF 50 OR 75MG A DAY
     Route: 048
     Dates: start: 2013
  2. LYRICA [Suspect]
     Active Substance: PREGABALIN
     Dosage: INCREASED IT EVERY 3 MONTHS
     Route: 048
  3. LYRICA [Suspect]
     Active Substance: PREGABALIN
     Dosage: 150MG CAPSULE, 1 CAPSULE AFTER EVENING MEAL AND 2 CAPSULES AT HOUR OF SLEEP
     Route: 048
  4. LYRICA [Suspect]
     Active Substance: PREGABALIN
     Dosage: 150 MG, 1 CAPSULE AT BEDTIME
     Route: 048
     Dates: start: 20150304, end: 20150312
  5. LYRICA [Suspect]
     Active Substance: PREGABALIN
     Dosage: 150 MG, 2 CAPSULES AT BEDTIME
     Route: 048
     Dates: start: 20150223

REACTIONS (13)
  - Malaise [Unknown]
  - Nausea [Unknown]
  - Hot flush [Unknown]
  - Sleep disorder [Unknown]
  - Therapeutic response unexpected [Unknown]
  - Asthenia [Not Recovered/Not Resolved]
  - Eructation [Unknown]
  - Feeling abnormal [Unknown]
  - Drug ineffective [Unknown]
  - Pre-existing condition improved [Unknown]
  - Decreased appetite [Unknown]
  - Drug withdrawal syndrome [Unknown]
  - Cystitis interstitial [Unknown]

NARRATIVE: CASE EVENT DATE: 20150312
